FAERS Safety Report 8425322-9 (Version None)
Quarter: 2012Q2

REPORT INFORMATION
  Report Type: 
  Country: None (occurrence: None)
  Receive Date: 20120611
  Receipt Date: 20120529
  Transmission Date: 20120825
  Serious: No
  Sender: FDA-Public Use
  Company Number: US-ASTRAZENECA-2011SE41574

PATIENT
  Age: 51 Year
  Sex: Female

DRUGS (23)
  1. CRESTOR [Concomitant]
     Indication: BLOOD CHOLESTEROL
  2. OXYCONTIN [Concomitant]
     Indication: PAIN
  3. NEXIUM [Suspect]
     Route: 048
     Dates: start: 20070101, end: 20101101
  4. ASPIRIN [Concomitant]
     Indication: CARDIOVASCULAR DISORDER
  5. PRILOSEC [Concomitant]
     Indication: GASTROOESOPHAGEAL REFLUX DISEASE
  6. METFORMIN HCL [Concomitant]
     Indication: DIABETES MELLITUS
  7. PHENERGAN [Concomitant]
     Indication: MULTIPLE ALLERGIES
  8. ADIPEX-P [Concomitant]
     Indication: WEIGHT DECREASED
  9. ACIPHEX [Concomitant]
     Indication: GASTROOESOPHAGEAL REFLUX DISEASE
  10. NAPROXSYN [Concomitant]
     Indication: INFLAMMATION
  11. XANAX [Concomitant]
     Indication: ANXIETY
  12. LIPITOR [Concomitant]
     Indication: BLOOD CHOLESTEROL
  13. INCLERAL [Concomitant]
     Indication: HYPERTENSION
  14. HYDROCODONE [Concomitant]
     Indication: PAIN
  15. EFFEXOR [Concomitant]
     Indication: DEPRESSION
  16. AMBIEN [Concomitant]
     Indication: INSOMNIA
  17. MICARDIS [Concomitant]
     Indication: HYPERTENSION
  18. NEXIUM [Suspect]
     Indication: GASTROOESOPHAGEAL REFLUX DISEASE
     Route: 048
     Dates: start: 20060501, end: 20100801
  19. PROZAC [Concomitant]
     Indication: DEPRESSION
  20. POTASSIUM CHLORIDE [Concomitant]
     Indication: BLOOD POTASSIUM DECREASED
  21. EXFORGE [Concomitant]
     Indication: HYPERTENSION
  22. NAPROXSYN [Concomitant]
     Indication: PAIN
  23. ULTRAM [Concomitant]
     Indication: PAIN

REACTIONS (8)
  - ARTHRITIS [None]
  - LOWER LIMB FRACTURE [None]
  - OSTEOPOROSIS [None]
  - MULTIPLE FRACTURES [None]
  - DIABETES MELLITUS [None]
  - EMOTIONAL DISTRESS [None]
  - PNEUMONIA [None]
  - DEPRESSION [None]
